FAERS Safety Report 13677311 (Version 1)
Quarter: 2017Q2

REPORT INFORMATION
  Report Type: Report from Study
  Country: US (occurrence: US)
  Receive Date: 20170622
  Receipt Date: 20170622
  Transmission Date: 20170830
  Serious: Yes (Other)
  Sender: FDA-Public Use
  Company Number: US-ROCHE-1954223

PATIENT

DRUGS (1)
  1. ALTEPLASE [Suspect]
     Active Substance: ALTEPLASE
     Indication: ISCHAEMIC STROKE
     Dosage: 0.9 MG/KG; MAXIMUM DOSE 90 MG, 10% ADMINISTERED AS 1-MINUTE BOLUS, THE REMAINING INFUSED OVER 1 HOU
     Route: 042

REACTIONS (1)
  - Musculoskeletal disorder [Unknown]
